FAERS Safety Report 26209713 (Version 1)
Quarter: 2025Q4

REPORT INFORMATION
  Report Type: Spontaneous
  Country: TW (occurrence: TW)
  Receive Date: 20251229
  Receipt Date: 20251229
  Transmission Date: 20260117
  Serious: Yes (Hospitalization)
  Sender: PFIZER
  Company Number: TW-PFIZER INC-PV202500149690

PATIENT
  Age: 54 Year
  Sex: Male

DRUGS (2)
  1. ZITHROMAX [Suspect]
     Active Substance: AZITHROMYCIN DIHYDRATE
     Indication: Pneumonia
     Dosage: UNK
     Dates: start: 20251102, end: 20251109
  2. PIPERACILLIN SODIUM\TAZOBACTAM SODIUM [Concomitant]
     Active Substance: PIPERACILLIN SODIUM\TAZOBACTAM SODIUM
     Indication: Pneumonia
     Dosage: UNK
     Dates: start: 20251102, end: 20251110

REACTIONS (7)
  - Rash [Recovered/Resolved]
  - Face oedema [Recovering/Resolving]
  - Drug reaction with eosinophilia and systemic symptoms [Recovering/Resolving]
  - Drug-induced liver injury [Recovering/Resolving]
  - Blood bilirubin increased [Recovering/Resolving]
  - Jaundice [Recovering/Resolving]
  - Erythema [Recovered/Resolved]

NARRATIVE: CASE EVENT DATE: 20251101
